FAERS Safety Report 7868883-0 (Version None)
Quarter: 2011Q4

REPORT INFORMATION
  Report Type: 
  Country: None (occurrence: None)
  Receive Date: 20111024
  Receipt Date: 20111017
  Transmission Date: 20120403
  Serious: Yes (Other)
  Sender: FDA-Public Use
  Company Number: 2011SP049100

PATIENT
  Age: 3 Year
  Sex: Female

DRUGS (3)
  1. MUCODYNE (CARBOCISTEINE) [Suspect]
     Indication: PRODUCTIVE COUGH
     Dosage: PO
     Route: 048
     Dates: start: 20111014, end: 20111016
  2. TELGIN G (CLEMASTAIN FUMARATE) [Suspect]
     Indication: RHINITIS ALLERGIC
     Dosage: 0.5 MG;QD;PO
     Route: 048
     Dates: start: 20111014, end: 20111016
  3. CLARITIN [Suspect]
     Indication: RHINITIS ALLERGIC
     Dosage: QD;PO
     Route: 048
     Dates: start: 20111014, end: 20111016

REACTIONS (2)
  - FACE OEDEMA [None]
  - OEDEMA PERIPHERAL [None]
